FAERS Safety Report 5895305-1 (Version None)
Quarter: 2008Q3

REPORT INFORMATION
  Report Type: 
  Country: None (occurrence: None)
  Receive Date: 20080924
  Receipt Date: 20080902
  Transmission Date: 20090109
  Serious: Yes (Hospitalization, Disabling)
  Sender: FDA-Public Use
  Company Number: FR-ASTRAZENECA-2008CG01372

PATIENT
  Age: 353 Month
  Sex: Male

DRUGS (20)
  1. RHINOCORT [Suspect]
     Indication: RHINITIS ALLERGIC
     Route: 045
     Dates: start: 20030415, end: 20031024
  2. RHINOCORT [Suspect]
     Route: 045
     Dates: start: 20031208, end: 20050822
  3. RHINOCORT [Suspect]
     Route: 045
     Dates: start: 20060629, end: 20060825
  4. RHINOCORT [Suspect]
     Route: 045
     Dates: start: 20061004, end: 20061225
  5. NASONEX [Suspect]
     Indication: RHINITIS ALLERGIC
     Route: 045
     Dates: start: 20031025, end: 20031207
  6. NASONEX [Suspect]
     Route: 045
     Dates: start: 20050823, end: 20060628
  7. NASONEX [Suspect]
     Route: 045
     Dates: start: 20060826, end: 20061003
  8. NASONEX [Suspect]
     Route: 045
     Dates: start: 20061226, end: 20080315
  9. MEDROL [Suspect]
     Indication: UPPER LIMB FRACTURE
     Route: 048
     Dates: start: 20061204, end: 20061201
  10. VENTOLIN [Concomitant]
  11. MIZOLLEN [Concomitant]
  12. RHINOFLUIMUCIL [Concomitant]
  13. KESTIN [Concomitant]
  14. TEXODIL [Concomitant]
  15. CELESTENE [Concomitant]
     Route: 048
     Dates: start: 20031126
  16. CELESTENE [Concomitant]
     Route: 048
     Dates: start: 20050103
  17. SOLUPRED [Concomitant]
     Route: 048
     Dates: start: 20040217
  18. SOLUPRED [Concomitant]
     Route: 048
     Dates: start: 20050524
  19. DERINOX [Concomitant]
     Route: 045
     Dates: start: 20050524
  20. DERINOX [Concomitant]
     Route: 048
     Dates: start: 20050524

REACTIONS (1)
  - OSTEONECROSIS [None]
